FAERS Safety Report 5176382-2 (Version None)
Quarter: 2007Q1

REPORT INFORMATION
  Report Type: 
  Country: None (occurrence: None)
  Receive Date: 20061207
  Receipt Date: 20061122
  Transmission Date: 20070707
  Serious: Yes (Hospitalization)
  Sender: FDA-Public Use
  Company Number: MEDI-0005166

PATIENT
  Sex: 0

DRUGS (1)
  1. SYNAGIS [Suspect]
     Indication: ANTIVIRAL PROPHYLAXIS
     Dosage: INTRAMUSCULAR; 3 WEEKS AGO
     Route: 030

REACTIONS (2)
  - HYPERSENSITIVITY [None]
  - SWELLING [None]
